FAERS Safety Report 7284540-6 (Version None)
Quarter: 2011Q1

REPORT INFORMATION
  Report Type: 
  Country: None (occurrence: None)
  Receive Date: 20110209
  Receipt Date: 20110208
  Transmission Date: 20110831
  Serious: Yes (Other)
  Sender: FDA-Public Use
  Company Number: US-AMGEN-USASP2011006209

PATIENT
  Age: 72 Year
  Sex: Male
  Weight: 116.1 kg

DRUGS (1)
  1. NPLATE [Suspect]
     Indication: PLATELET COUNT DECREASED
     Dosage: UNK UNK, QWK
     Route: 058
     Dates: start: 20090915, end: 20090930

REACTIONS (1)
  - PLATELET COUNT DECREASED [None]
